FAERS Safety Report 21824424 (Version 2)
Quarter: 2023Q1

REPORT INFORMATION
  Report Type: Report from Study
  Country: US (occurrence: US)
  Receive Date: 20230105
  Receipt Date: 20230106
  Transmission Date: 20230417
  Serious: Yes (Hospitalization)
  Sender: FDA-Public Use
  Company Number: US-ABBVIE-4255137

PATIENT
  Sex: Male
  Weight: 66 kg

DRUGS (1)
  1. HUMIRA [Suspect]
     Active Substance: ADALIMUMAB
     Indication: Rheumatoid arthritis
     Dosage: CF?FIRST ADMIN DATE: OCT OR NOV-2022
     Route: 058
     Dates: end: 202212

REACTIONS (4)
  - Ejection fraction decreased [Recovering/Resolving]
  - Oxygen saturation decreased [Recovering/Resolving]
  - Illness [Recovering/Resolving]
  - Cardiac failure congestive [Recovering/Resolving]

NARRATIVE: CASE EVENT DATE: 20220101
